FAERS Safety Report 15968606 (Version 2)
Quarter: 2019Q1

REPORT INFORMATION
  Report Type: Report from Study
  Country: FR (occurrence: FR)
  Receive Date: 20190215
  Receipt Date: 20190221
  Transmission Date: 20190418
  Serious: Yes (Hospitalization)
  Sender: FDA-Public Use
  Company Number: FR-PFIZER INC-2019060151

PATIENT
  Weight: 43.6 kg

DRUGS (8)
  1. GENTAMICIN. [Concomitant]
     Active Substance: GENTAMICIN
     Indication: INFECTION
     Dosage: 60 MG, 3X/DAY
     Dates: start: 20181229, end: 20190118
  2. GEMTUZUMAB OZOGAMICIN [Suspect]
     Active Substance: GEMTUZUMAB OZOGAMICIN
     Dosage: 4.3 MG, 1X/DAY
     Route: 042
     Dates: start: 20181222, end: 20181225
  3. CYTARABINE. [Suspect]
     Active Substance: CYTARABINE
     Dosage: 145 MG, 1X/DAY
     Route: 042
     Dates: start: 20181220, end: 20181225
  4. PARACETAMOL [Concomitant]
     Active Substance: ACETAMINOPHEN
     Indication: PYREXIA
     Dosage: 450 MG, AS NEEDED
     Dates: start: 20190112
  5. PIPERACILLIN. [Concomitant]
     Active Substance: PIPERACILLIN SODIUM
     Indication: INFECTION
     Dosage: 4000 MG, EVERY 4 HRS
     Dates: start: 20181220
  6. MITOXANTRONE [Suspect]
     Active Substance: MITOXANTRONE HYDROCHLORIDE
     Dosage: 17 MG, 1X/DAY
     Route: 042
     Dates: start: 20181219, end: 20181228
  7. VANCOMYCIN [Concomitant]
     Active Substance: VANCOMYCIN
     Indication: INFECTION
     Dosage: 550 MG, EVERY 4 HRS
     Dates: start: 20190114, end: 20190116
  8. AMIKACINE [AMIKACIN] [Concomitant]
     Active Substance: AMIKACIN
     Indication: INFECTION
     Dosage: 625 MG, 1X/DAY
     Dates: start: 20190114, end: 20190115

REACTIONS (2)
  - Myalgia [Recovered/Resolved]
  - Pyrexia [Recovered/Resolved]

NARRATIVE: CASE EVENT DATE: 20190114
